FAERS Safety Report 5537525-1 (Version None)
Quarter: 2007Q4

REPORT INFORMATION
  Report Type: 
  Country: None (occurrence: None)
  Receive Date: 20071207
  Receipt Date: 20071127
  Transmission Date: 20080405
  Serious: Yes (Other)
  Sender: FDA-Public Use
  Company Number: PL-AMGEN-US246616

PATIENT
  Age: 53 Year
  Sex: Male
  Weight: 50 kg

DRUGS (4)
  1. ENBREL [Suspect]
     Indication: ANKYLOSING SPONDYLITIS
     Route: 058
     Dates: start: 20050701, end: 20050801
  2. ENBREL [Suspect]
     Route: 058
     Dates: start: 20050101, end: 20050901
  3. DICLOFENAC [Concomitant]
     Indication: ANKYLOSING SPONDYLITIS
  4. METHYLPREDNISOLONE [Concomitant]
     Indication: ANKYLOSING SPONDYLITIS

REACTIONS (1)
  - PSORIASIS [None]
